FAERS Safety Report 7773932-4 (Version None)
Quarter: 2011Q3

REPORT INFORMATION
  Report Type: 
  Country: None (occurrence: None)
  Receive Date: 20110923
  Receipt Date: 20110913
  Transmission Date: 20111222
  Serious: Yes (Other)
  Sender: FDA-Public Use
  Company Number: GR-AMGEN-GRCSP2011047126

PATIENT
  Age: 65 Year
  Sex: Male

DRUGS (5)
  1. GLUCOPHAGE [Concomitant]
  2. ASPIRIN [Concomitant]
  3. INSULIN [Concomitant]
  4. WARFARIN SODIUM [Concomitant]
  5. CINACALCET HYDROCHLORIDE [Suspect]
     Indication: HYPERPARATHYROIDISM PRIMARY
     Dosage: 30 MG, BID
     Dates: start: 20110201, end: 20110901

REACTIONS (6)
  - CACHEXIA [None]
  - BLOOD CALCIUM ABNORMAL [None]
  - VOMITING [None]
  - MALNUTRITION [None]
  - WEIGHT DECREASED [None]
  - DECREASED APPETITE [None]
